FAERS Safety Report 20564084 (Version 2)
Quarter: 2022Q2

REPORT INFORMATION
  Report Type: Report from Study
  Country: CA (occurrence: CA)
  Receive Date: 20220308
  Receipt Date: 20220414
  Transmission Date: 20220721
  Serious: Yes (Death, Life-Threatening, Hospitalization, Other)
  Sender: FDA-Public Use
  Company Number: CA-JNJFOC-20211055503

PATIENT
  Age: 68 Year
  Sex: Female
  Weight: 137 kg

DRUGS (25)
  1. DARATUMUMAB [Suspect]
     Active Substance: DARATUMUMAB
     Indication: Plasma cell myeloma
     Route: 042
     Dates: start: 20210318, end: 20210318
  2. DEXAMETHASONE [Suspect]
     Active Substance: DEXAMETHASONE
     Indication: Plasma cell myeloma
     Route: 042
     Dates: start: 20210318, end: 20210318
  3. DEXAMETHASONE [Suspect]
     Active Substance: DEXAMETHASONE
     Route: 042
     Dates: start: 20210930, end: 20210930
  4. ATORVASTATIN [Concomitant]
     Active Substance: ATORVASTATIN
     Indication: Hypercholesterolaemia
     Dosage: 20 MG X 1 X 1 DAYS
     Route: 048
     Dates: start: 2008, end: 20211103
  5. BETAMETHASONE;LIDOCAINE HYDROCHLORIDE;NEOMYCIN SULFATE;POLYMYXIN B SUL [Concomitant]
     Indication: Osteoarthritis
     Dosage: 2-2-1 ML X 2 X 1 YEARS
     Route: 014
     Dates: start: 2016, end: 20211103
  6. CALCIUM CARBONATE\CHOLECALCIFEROL [Concomitant]
     Active Substance: CALCIUM CARBONATE\CHOLECALCIFEROL
     Indication: Supportive care
     Dosage: 500 MG + 400 UI MG X 2 X 1 DAYS
     Route: 048
     Dates: start: 2012, end: 20211103
  7. LOPERAMIDE HYDROCHLORIDE [Concomitant]
     Active Substance: LOPERAMIDE HYDROCHLORIDE
     Indication: Diarrhoea
     Dosage: 2 MG X PRN
     Route: 048
     Dates: start: 2013, end: 20211103
  8. INSULIN ASPART [Concomitant]
     Active Substance: INSULIN ASPART
     Indication: Type 2 diabetes mellitus
     Dosage: 26 TO 50 IU X 3 X 1 DAYS
     Route: 058
     Dates: start: 201302, end: 20211103
  9. VITAMIN B12 [Concomitant]
     Active Substance: CYANOCOBALAMIN
     Indication: Anaemia prophylaxis
     Dosage: 1000 UG X 1 X 1 DAYS
     Route: 048
     Dates: start: 2010, end: 20211103
  10. ACETAMINOPHEN [Concomitant]
     Active Substance: ACETAMINOPHEN
     Indication: Prophylaxis
     Dosage: 650 MG X 1 X 1 WEEKS
     Route: 048
     Dates: start: 20210318
  11. ASPIRIN [Concomitant]
     Active Substance: ASPIRIN
     Indication: Prophylaxis
     Dosage: 80 MG X 1 X 1 DAYS
     Route: 048
     Dates: start: 20120817
  12. INSULIN GLARGINE [Concomitant]
     Active Substance: INSULIN GLARGINE
     Indication: Type 2 diabetes mellitus
     Dosage: DEPENDS ON BLOOD SUGAR IU X 1 X 1 WEEKS
     Route: 058
     Dates: start: 20210326
  13. CARVEDILOL [Concomitant]
     Active Substance: CARVEDILOL
     Indication: Hypertension
     Dosage: 9.375 MG X 2 X 1 DAYS
     Route: 048
     Dates: start: 20200107
  14. DIPHENHYDRAMINE [Concomitant]
     Active Substance: DIPHENHYDRAMINE
     Indication: Prophylaxis
     Dosage: 25 MG X 1 X 1 WEEKS
     Route: 048
     Dates: start: 20210318
  15. FERROUS SULFATE [Concomitant]
     Active Substance: FERROUS SULFATE
     Indication: Iron deficiency anaemia
     Dosage: 300 MG X 1 X 1 DAYS
     Route: 048
     Dates: start: 20210319
  16. FUROSEMIDE [Concomitant]
     Active Substance: FUROSEMIDE
     Indication: Oedema peripheral
     Dosage: 20 MG X 2 X 1 WEEKS
     Route: 048
     Dates: start: 20210512
  17. HUMAN IMMUNE GLOBULIN [Concomitant]
     Indication: Infection prophylaxis
     Dosage: 12 G X 1 X 1 WEEKS
     Route: 058
     Dates: start: 20201031, end: 20210920
  18. HUMAN IMMUNE GLOBULIN [Concomitant]
     Dosage: 14 G X 1 X 1 WEEKS
     Route: 058
     Dates: start: 20210920, end: 20211103
  19. LEVOTHYROXINE [Concomitant]
     Active Substance: LEVOTHYROXINE
     Indication: Hypothyroidism
     Dosage: 100 UG X 1 X 1 DAYS
     Route: 048
     Dates: start: 20120817
  20. METFORMIN [Concomitant]
     Active Substance: METFORMIN HYDROCHLORIDE
     Indication: Type 2 diabetes mellitus
     Dosage: 1000 UG X 2 X 1 DAYS
     Route: 048
     Dates: start: 20210413
  21. RANITIDINE [Concomitant]
     Active Substance: RANITIDINE
     Indication: Prophylaxis
     Dosage: 300 MG X 1 X 1 DAYS
     Route: 048
     Dates: start: 20210317
  22. VALACYCLOVIR [Concomitant]
     Active Substance: VALACYCLOVIR HYDROCHLORIDE
     Indication: Prophylaxis
     Dosage: 500 MG X 1 X 1 DAYS
     Route: 048
     Dates: start: 20210311
  23. ZOLEDRONIC ACID [Concomitant]
     Active Substance: ZOLEDRONIC ACID
     Indication: Prophylaxis
     Dosage: 4 MG X 1 X 3 MONTHS
     Route: 042
     Dates: start: 20210805
  24. ZOPICLONE [Concomitant]
     Active Substance: ZOPICLONE
     Indication: Insomnia
     Dosage: 5 MG X PRN
     Route: 048
     Dates: start: 20190828
  25. BUPIVACAINE [Concomitant]
     Active Substance: BUPIVACAINE
     Indication: Osteoarthritis
     Route: 065

REACTIONS (2)
  - Listeria sepsis [Fatal]
  - Meningitis listeria [Fatal]

NARRATIVE: CASE EVENT DATE: 20211018
